FAERS Safety Report 7783749-2 (Version None)
Quarter: 2011Q3

REPORT INFORMATION
  Report Type: 
  Country: None (occurrence: None)
  Receive Date: 20110928
  Receipt Date: 20110919
  Transmission Date: 20111222
  Serious: Yes (Other)
  Sender: FDA-Public Use
  Company Number: CA-ELI_LILLY_AND_COMPANY-CA201109005384

PATIENT
  Age: 64 Year
  Sex: Male

DRUGS (1)
  1. HUMALOG [Suspect]
     Dosage: UNK, TID
     Dates: start: 19990101

REACTIONS (3)
  - VITRECTOMY [None]
  - DRUG DOSE OMISSION [None]
  - VISUAL IMPAIRMENT [None]
